FAERS Safety Report 5034466-3 (Version None)
Quarter: 2006Q2

REPORT INFORMATION
  Report Type: 
  Country: None (occurrence: None)
  Receive Date: 20060626
  Receipt Date: 20060614
  Transmission Date: 20061013
  Serious: Yes (Hospitalization)
  Sender: FDA-Public Use
  Company Number: US-SANOFI-SYNTHELABO-F01200601439

PATIENT
  Sex: Male

DRUGS (7)
  1. GAVISCON [Concomitant]
  2. ALTACE [Concomitant]
     Dosage: UNK
     Dates: start: 20050613
  3. TAMSULOSIN HCL [Concomitant]
     Dosage: UNK
     Dates: start: 20050613
  4. ASPIRIN [Concomitant]
     Dosage: UNK
     Dates: start: 20050523
  5. TOPROL-XL [Concomitant]
     Dosage: UNK
     Dates: start: 20041221
  6. CLOPIDOGREL [Suspect]
     Indication: ACUTE CORONARY SYNDROME
     Dosage: UNK
     Dates: start: 20050524
  7. FISH OIL [Concomitant]
     Dosage: UNK
     Dates: start: 20051011, end: 20060524

REACTIONS (4)
  - GLOBAL AMNESIA [None]
  - LYMPHOCYTE PERCENTAGE DECREASED [None]
  - NEUTROPHIL COUNT INCREASED [None]
  - NEUTROPHIL PERCENTAGE INCREASED [None]
